FAERS Safety Report 7648383-3 (Version None)
Quarter: 2011Q3

REPORT INFORMATION
  Report Type: 
  Country: None (occurrence: None)
  Receive Date: 20110801
  Receipt Date: 20110720
  Transmission Date: 20111222
  Serious: Yes (Hospitalization)
  Sender: FDA-Public Use
  Company Number: US-JNJFOC-20110710363

PATIENT
  Sex: Female
  Weight: 39.2 kg

DRUGS (4)
  1. MULTI-VITAMINS [Concomitant]
     Indication: INFLAMMATORY BOWEL DISEASE
  2. HUMIRA [Suspect]
     Indication: PRODUCT USED FOR UNKNOWN INDICATION
     Dates: start: 20100719
  3. FERROUS SULFATE TAB [Concomitant]
     Indication: INFLAMMATORY BOWEL DISEASE
  4. REMICADE [Suspect]
     Indication: INFLAMMATORY BOWEL DISEASE
     Route: 042
     Dates: start: 20091101, end: 20100616

REACTIONS (3)
  - ANAL FISTULA [None]
  - CONDITION AGGRAVATED [None]
  - CROHN'S DISEASE [None]
